FAERS Safety Report 8001757-3 (Version None)
Quarter: 2011Q4

REPORT INFORMATION
  Report Type: 
  Country: None (occurrence: None)
  Receive Date: 20111222
  Receipt Date: 20111215
  Transmission Date: 20120403
  Serious: Yes (Death)
  Sender: FDA-Public Use
  Company Number: US-PFIZER INC-2011306365

PATIENT
  Sex: Male

DRUGS (1)
  1. DILANTIN-125 [Suspect]

REACTIONS (1)
  - DEATH [None]
